FAERS Safety Report 11045740 (Version 6)
Quarter: 2016Q3

REPORT INFORMATION
  Report Type: Spontaneous
  Country: US (occurrence: US)
  Receive Date: 20150417
  Receipt Date: 20160808
  Transmission Date: 20161109
  Serious: Yes (Hospitalization, Other)
  Sender: FDA-Public Use
  Company Number: US-009507513-1504USA017098

PATIENT
  Sex: Male
  Weight: 93.42 kg

DRUGS (3)
  1. PROPECIA [Suspect]
     Active Substance: FINASTERIDE
     Indication: ALOPECIA
     Dosage: 1 MG, QD
     Route: 048
     Dates: start: 2002, end: 200807
  2. ZOCOR [Concomitant]
     Active Substance: SIMVASTATIN
     Indication: BLOOD CHOLESTEROL INCREASED
     Dosage: 20 MG, QD
     Route: 048
  3. ZOCOR [Concomitant]
     Active Substance: SIMVASTATIN
     Indication: HYPERLIPIDAEMIA

REACTIONS (16)
  - Foot fracture [Unknown]
  - Depression [Recovered/Resolved]
  - Testicular failure [Unknown]
  - Bundle branch block right [Unknown]
  - Erectile dysfunction [Not Recovered/Not Resolved]
  - Anxiety [Not Recovered/Not Resolved]
  - Alcoholism [Unknown]
  - Sexual dysfunction [Not Recovered/Not Resolved]
  - Fatigue [Unknown]
  - Emotional distress [Recovered/Resolved]
  - Irritability [Recovered/Resolved]
  - Sleep apnoea syndrome [Unknown]
  - Melaena [Unknown]
  - Pneumonia [Unknown]
  - Pertussis [Unknown]
  - Vitamin D deficiency [Unknown]

NARRATIVE: CASE EVENT DATE: 2002
